FAERS Safety Report 6669177-1 (Version None)
Quarter: 2010Q2

REPORT INFORMATION
  Report Type: 
  Country: None (occurrence: None)
  Receive Date: 20100406
  Receipt Date: 20100326
  Transmission Date: 20101027
  Serious: Yes (Other)
  Sender: FDA-Public Use
  Company Number: ES-PFIZER INC-2010026789

PATIENT
  Age: 50 Year
  Sex: Male

DRUGS (2)
  1. PHENYTOIN SODIUM [Suspect]
     Dosage: 1 G, IN 30 MINUTES
     Route: 042
     Dates: start: 20060101
  2. PHENYTOIN [Suspect]
     Dosage: 100 MG, EVERY 8 HOURS
     Route: 048
     Dates: start: 20060101

REACTIONS (1)
  - OPHTHALMOPLEGIA [None]
